FAERS Safety Report 8736598 (Version 2)
Quarter: 2012Q4

REPORT INFORMATION
  Report Type: 
  Country: US (occurrence: US)
  Receive Date: 20120822
  Receipt Date: 20120904
  Transmission Date: 20130627
  Serious: Yes (Hospitalization)
  Sender: FDA-Public Use
  Company Number: US-GLAXOSMITHKLINE-A0990077A

PATIENT
  Age: 72 Year
  Sex: Male

DRUGS (7)
  1. JALYN [Suspect]
     Indication: BENIGN PROSTATIC HYPERPLASIA
     Dosage: 1CAP Per day
     Route: 048
     Dates: end: 20120816
  2. GEMFIBROZIL [Concomitant]
  3. LOVASTATIN [Concomitant]
  4. METFORMIN [Concomitant]
  5. LISINOPRIL [Concomitant]
  6. AMLODIPINE [Concomitant]
  7. LEVOTHYROXINE [Concomitant]

REACTIONS (11)
  - Agitation [Not Recovered/Not Resolved]
  - Constipation [Unknown]
  - Nervousness [Unknown]
  - Anxiety [Unknown]
  - Feeling hot [Unknown]
  - Pyrexia [Unknown]
  - Hyperhidrosis [Unknown]
  - Dry skin [Unknown]
  - Hypotension [Unknown]
  - Confusional state [Unknown]
  - Chest pain [Unknown]
